FAERS Safety Report 16011304 (Version 1)
Quarter: 2019Q1

REPORT INFORMATION
  Report Type: Spontaneous
  Country: US (occurrence: US)
  Receive Date: 20190130
  Receipt Date: 20190130
  Transmission Date: 20190418
  Serious: No
  Sender: FDA-Public Use
  Company Number: None

PATIENT
  Age: 73 Year
  Sex: Male

DRUGS (1)
  1. IBRANCE [Suspect]
     Active Substance: PALBOCICLIB
     Indication: RETROPERITONEAL CANCER
     Route: 048
     Dates: start: 20181219

REACTIONS (4)
  - Testicular pain [None]
  - Feeling abnormal [None]
  - Burning sensation [None]
  - Testicular swelling [None]

NARRATIVE: CASE EVENT DATE: 20181227
